FAERS Safety Report 19369494 (Version 2)
Quarter: 2021Q3

REPORT INFORMATION
  Report Type: Report from Study
  Country: None (occurrence: US)
  Receive Date: 20210602
  Receipt Date: 20210708
  Transmission Date: 20211014
  Serious: Yes (Hospitalization, Other)
  Sender: FDA-Public Use
  Company Number: US-ABBVIE-21K-163-3917912-00

PATIENT
  Age: 52 Year
  Sex: Male

DRUGS (5)
  1. HUMIRA [Suspect]
     Active Substance: ADALIMUMAB
     Dosage: DAY 15
     Route: 058
     Dates: start: 20210317, end: 20210317
  2. HUMIRA [Suspect]
     Active Substance: ADALIMUMAB
     Route: 058
     Dates: start: 2021, end: 2021
  3. HUMIRA [Suspect]
     Active Substance: ADALIMUMAB
     Indication: CROHN^S DISEASE
     Route: 058
     Dates: start: 202101, end: 2021
  4. HUMIRA [Suspect]
     Active Substance: ADALIMUMAB
     Dosage: DAY 1
     Route: 058
     Dates: start: 20210303, end: 20210303
  5. HUMIRA [Suspect]
     Active Substance: ADALIMUMAB
     Route: 058
     Dates: start: 2021

REACTIONS (18)
  - Anxiety [Not Recovered/Not Resolved]
  - Abdominal pain upper [Recovering/Resolving]
  - Rectal haemorrhage [Not Recovered/Not Resolved]
  - Intestinal obstruction [Recovering/Resolving]
  - Pyrexia [Recovering/Resolving]
  - Weight decreased [Recovering/Resolving]
  - Vision blurred [Unknown]
  - Fear [Not Recovered/Not Resolved]
  - Drug ineffective [Unknown]
  - Diarrhoea haemorrhagic [Not Recovered/Not Resolved]
  - Fatigue [Unknown]
  - Depressed mood [Not Recovered/Not Resolved]
  - Constipation [Not Recovered/Not Resolved]
  - Gastrointestinal wall thickening [Recovering/Resolving]
  - Insomnia [Not Recovered/Not Resolved]
  - Small intestinal obstruction [Recovering/Resolving]
  - Gastrointestinal infection [Recovering/Resolving]
  - Diverticulitis [Recovering/Resolving]

NARRATIVE: CASE EVENT DATE: 2021
